FAERS Safety Report 14620458 (Version 1)
Quarter: 2018Q1

REPORT INFORMATION
  Report Type: Spontaneous
  Country: US (occurrence: US)
  Receive Date: 20180309
  Receipt Date: 20180309
  Transmission Date: 20180509
  Serious: No
  Sender: FDA-Public Use
  Company Number: US-ALLERGAN-1712324US

PATIENT
  Age: 37 Year
  Sex: Female

DRUGS (1)
  1. OZURDEX [Suspect]
     Active Substance: DEXAMETHASONE
     Indication: RETINAL VEIN OCCLUSION
     Dosage: 0.7 MG, SINGLE
     Route: 031
     Dates: start: 201703

REACTIONS (5)
  - Medication error [Unknown]
  - Vitreous haemorrhage [Unknown]
  - Vision blurred [Unknown]
  - Intraocular pressure increased [Recovered/Resolved]
  - Complication of device insertion [Unknown]

NARRATIVE: CASE EVENT DATE: 201703
